FAERS Safety Report 11203155 (Version 1)
Quarter: 2015Q2

REPORT INFORMATION
  Report Type: Spontaneous
  Country: US (occurrence: US)
  Receive Date: 20150619
  Receipt Date: 20150619
  Transmission Date: 20150821
  Serious: No
  Sender: FDA-Public Use
  Company Number: US-BAYER-2015-361238

PATIENT
  Sex: Female

DRUGS (5)
  1. OXYCODONE [Suspect]
     Active Substance: OXYCODONE
  2. K-DUR [Suspect]
     Active Substance: POTASSIUM CHLORIDE
     Dosage: 1 DF, QD (20 MEQ)
     Route: 048
     Dates: start: 20140401
  3. CLARITIN [Suspect]
     Active Substance: LORATADINE
     Dosage: 1 DF, QD (10 MG)
     Route: 048
     Dates: start: 20140428
  4. PROVENTIL [Suspect]
     Active Substance: ALBUTEROL
     Indication: WHEEZING
     Dosage: 3 ML, EVERY SIX HOURS AS NEEDED
     Route: 055
     Dates: start: 20130521
  5. MOBIC [Suspect]
     Active Substance: MELOXICAM

REACTIONS (6)
  - Diarrhoea [Unknown]
  - Bronchitis chronic [Not Recovered/Not Resolved]
  - Dyspnoea [Unknown]
  - Pain [Not Recovered/Not Resolved]
  - Pruritus [Unknown]
  - Pruritus allergic [Unknown]

NARRATIVE: CASE EVENT DATE: 20130821
